FAERS Safety Report 8132821-6 (Version None)
Quarter: 2012Q1

REPORT INFORMATION
  Report Type: 
  Country: None (occurrence: None)
  Receive Date: 20120208
  Receipt Date: 20120127
  Transmission Date: 20120608
  Serious: Yes (Hospitalization)
  Sender: FDA-Public Use
  Company Number: 1000025847

PATIENT
  Age: 60 Year
  Sex: Male
  Weight: 115 kg

DRUGS (6)
  1. ROFLUMILAST (ROFLUMILAST) (TABLETS) [Suspect]
     Indication: CHRONIC OBSTRUCTIVE PULMONARY DISEASE
     Dosage: 500 MCG, ORAL
     Route: 048
     Dates: start: 20110315, end: 20110330
  2. DILTIAGAMMA (DILTIAZEM HYDROCHLORIDE) [Concomitant]
  3. BLOPRESS 32 PLUSS (CANDESARTAN) [Concomitant]
  4. HIROBRIZ [Concomitant]
  5. BUDESONIDE [Concomitant]
  6. SPIRIVA [Concomitant]

REACTIONS (6)
  - MUSCLE SPASMS [None]
  - SLEEP DISORDER [None]
  - HEADACHE [None]
  - HYPERHIDROSIS [None]
  - DIZZINESS [None]
  - BLOOD CHOLESTEROL INCREASED [None]
